FAERS Safety Report 17566662 (Version 2)
Quarter: 2020Q2

REPORT INFORMATION
  Report Type: Spontaneous
  Country: US (occurrence: US)
  Receive Date: 20200320
  Receipt Date: 20200504
  Transmission Date: 20200713
  Serious: Yes (Other)
  Sender: FDA-Public Use
  Company Number: US-PFIZER INC-2020119019

PATIENT
  Age: 75 Year
  Sex: Female
  Weight: 78.02 kg

DRUGS (1)
  1. VFEND [Suspect]
     Active Substance: VORICONAZOLE
     Indication: FUNGAL TEST
     Dosage: 200 MG, 2X/DAY
     Route: 048
     Dates: start: 201912, end: 202001

REACTIONS (5)
  - Pneumonia [Unknown]
  - Muscle spasms [Recovered/Resolved]
  - Malaise [Unknown]
  - Dizziness [Recovered/Resolved]
  - Peripheral swelling [Not Recovered/Not Resolved]

NARRATIVE: CASE EVENT DATE: 201912
